FAERS Safety Report 12406391 (Version 1)
Quarter: 2016Q2

REPORT INFORMATION
  Report Type: Spontaneous
  Country: IT (occurrence: IT)
  Receive Date: 20160526
  Receipt Date: 20160526
  Transmission Date: 20160815
  Serious: Yes (Other)
  Sender: FDA-Public Use
  Company Number: IT-ACCORD-040773

PATIENT
  Age: 79 Year
  Sex: Female

DRUGS (1)
  1. LETROZOLE. [Suspect]
     Active Substance: LETROZOLE
     Indication: BREAST CANCER
     Dosage: GENERIC
     Route: 048

REACTIONS (4)
  - Pruritus [Recovered/Resolved]
  - Dermatitis [Recovered/Resolved]
  - Hypersensitivity [Unknown]
  - Product substitution issue [Unknown]

NARRATIVE: CASE EVENT DATE: 20140101
